FAERS Safety Report 7648368-7 (Version None)
Quarter: 2011Q3

REPORT INFORMATION
  Report Type: 
  Country: None (occurrence: None)
  Receive Date: 20110801
  Receipt Date: 20110718
  Transmission Date: 20111222
  Serious: Yes (Hospitalization, Other)
  Sender: FDA-Public Use
  Company Number: ES-BAYER-2011-061969

PATIENT
  Age: 74 Year
  Sex: Female
  Weight: 70 kg

DRUGS (10)
  1. LEVETIRACETAM [Interacting]
     Indication: CONVULSION
     Dosage: NASOGASTRIC TUBE
     Route: 048
     Dates: start: 20110604, end: 20110623
  2. LEVOTHYROXINE SODIUM [Interacting]
     Indication: HYPOPITUITARISM
     Route: 048
  3. ATORVASTATIN [Interacting]
     Indication: CEREBROVASCULAR ACCIDENT
     Dosage: NASOGASTRIC TUBE
     Route: 048
     Dates: start: 20110604, end: 20110623
  4. AMLODIPINE [Interacting]
     Indication: HYPERTENSION
     Dosage: NASOGASTRIC TUBE
     Route: 048
     Dates: start: 20110613
  5. HYDROCORTISONE [Interacting]
     Indication: HYPOPITUITARISM
     Route: 048
  6. LISINOPRIL [Interacting]
     Indication: HYPERTENSION
     Dosage: NASOGASTRIC TUBE
     Route: 048
     Dates: start: 20110613
  7. FUROSEMIDE [Interacting]
     Indication: HYPERTENSION
     Dosage: NASOGASTRIC TUBE
     Route: 048
     Dates: start: 20110613
  8. ASPIRIN [Suspect]
     Indication: CEREBROVASCULAR ACCIDENT
     Dosage: NASOGASTRIC TUBE
     Route: 048
     Dates: start: 20110604
  9. CLOPIDOGREL [Interacting]
     Indication: CEREBROVASCULAR ACCIDENT
     Dosage: NASOGASTRIC TUBE
     Route: 048
     Dates: start: 20110604
  10. NEXIUM [Interacting]
     Indication: UPPER GASTROINTESTINAL HAEMORRHAGE
     Dosage: NASOGASTRIC TUBE
     Route: 048
     Dates: start: 20110613

REACTIONS (1)
  - HEPATITIS TOXIC [None]
